FAERS Safety Report 10155982 (Version 2)
Quarter: 2014Q2

REPORT INFORMATION
  Report Type: Report from Study
  Country: FR (occurrence: FR)
  Receive Date: 20140506
  Receipt Date: 20140506
  Transmission Date: 20141212
  Serious: Yes (Hospitalization)
  Sender: FDA-Public Use
  Company Number: FR-ASTRAZENECA-2014SE04332

PATIENT
  Age: 377 Month
  Sex: Male
  Weight: 82 kg

DRUGS (5)
  1. XEROQUEL [Suspect]
     Indication: BIPOLAR DISORDER
     Route: 048
     Dates: start: 20130306, end: 20130306
  2. PROZAC [Concomitant]
     Route: 048
     Dates: start: 20120706, end: 20130306
  3. RISPAERDAL [Concomitant]
     Route: 048
     Dates: start: 20120703, end: 20130306
  4. VALIUM [Concomitant]
     Route: 048
     Dates: start: 20130306
  5. LOXAPAC [Concomitant]
     Route: 048
     Dates: start: 20130306

REACTIONS (2)
  - Psychiatric decompensation [Recovering/Resolving]
  - Treatment noncompliance [Recovering/Resolving]
